FAERS Safety Report 15030648 (Version 2)
Quarter: 2018Q2

REPORT INFORMATION
  Report Type: Spontaneous
  Country: FR (occurrence: FR)
  Receive Date: 20180619
  Receipt Date: 20180626
  Transmission Date: 20180711
  Serious: Yes (Other)
  Sender: FDA-Public Use
  Company Number: FR-GILEAD-2018-0345548

PATIENT
  Age: 50 Year
  Sex: Male

DRUGS (1)
  1. VIREAD [Suspect]
     Active Substance: TENOFOVIR DISOPROXIL FUMARATE
     Indication: HEPATITIS B
     Dosage: UNK
     Route: 065
     Dates: start: 201005

REACTIONS (6)
  - Hypercalciuria [Unknown]
  - Osteoporosis [Unknown]
  - Urine phosphorus abnormal [Unknown]
  - Hypophosphataemia [Unknown]
  - Serum ferritin decreased [Unknown]
  - Renal failure [Unknown]

NARRATIVE: CASE EVENT DATE: 201304
